FAERS Safety Report 23844432 (Version 2)
Quarter: 2024Q2

REPORT INFORMATION
  Report Type: Report from Study
  Country: US (occurrence: US)
  Receive Date: 20240510
  Receipt Date: 20240606
  Transmission Date: 20240715
  Serious: Yes (Other)
  Sender: FDA-Public Use
  Company Number: US-TAKEDA-2024TUS041957

PATIENT
  Age: 77 Year
  Sex: Male
  Weight: 110 kg

DRUGS (4)
  1. FRUQUINTINIB [Suspect]
     Active Substance: FRUQUINTINIB
     Indication: Metastases to liver
     Dosage: 5 MILLIGRAM, QD
     Route: 048
     Dates: start: 20240416
  2. FRUQUINTINIB [Suspect]
     Active Substance: FRUQUINTINIB
     Indication: Cholangiocarcinoma
  3. FRUQUINTINIB [Suspect]
     Active Substance: FRUQUINTINIB
     Indication: Colon cancer
  4. STIVARGA [Suspect]
     Active Substance: REGORAFENIB\REGORAFENIB MONOHYDRATE
     Indication: Product used for unknown indication
     Dosage: UNK
     Route: 065

REACTIONS (8)
  - Colon cancer [Unknown]
  - Renal cancer [Unknown]
  - Hepatic cancer [Unknown]
  - Neuropathy peripheral [Unknown]
  - Blister [Unknown]
  - Abdominal pain [Recovered/Resolved]
  - Fall [Unknown]
  - Injury [Unknown]

NARRATIVE: CASE EVENT DATE: 20240401
